FAERS Safety Report 17689467 (Version 1)
Quarter: 2020Q2

REPORT INFORMATION
  Report Type: Spontaneous
  Country: US (occurrence: US)
  Receive Date: 20200421
  Receipt Date: 20200421
  Transmission Date: 20200714
  Serious: No
  Sender: FDA-Public Use
  Company Number: None

PATIENT
  Age: 79 Year
  Sex: Female
  Weight: 39.15 kg

DRUGS (1)
  1. MEROPENEM 2GM/100ML NS HOMEPUMP [Suspect]
     Active Substance: MEROPENEM
     Indication: UPPER RESPIRATORY TRACT INFECTION
     Dosage: ?          OTHER FREQUENCY:Q8HR;?
     Route: 041
     Dates: start: 20190827, end: 20190908

REACTIONS (2)
  - Stomatitis [None]
  - Glossodynia [None]

NARRATIVE: CASE EVENT DATE: 20190909
